FAERS Safety Report 8420382-3 (Version None)
Quarter: 2012Q2

REPORT INFORMATION
  Report Type: 
  Country: None (occurrence: None)
  Receive Date: 20120607
  Receipt Date: 20120605
  Transmission Date: 20120825
  Serious: Yes (Disabling)
  Sender: FDA-Public Use
  Company Number: US-MERCK-1206USA00836

PATIENT
  Age: 69 Year
  Sex: Female

DRUGS (1)
  1. FOSAMAX [Suspect]
     Route: 048
     Dates: start: 20020101, end: 20100101

REACTIONS (6)
  - MULTIPLE INJURIES [None]
  - ANHEDONIA [None]
  - UNEVALUABLE EVENT [None]
  - ANXIETY [None]
  - PAIN [None]
  - FEMUR FRACTURE [None]
